FAERS Safety Report 18748633 (Version 5)
Quarter: 2022Q2

REPORT INFORMATION
  Report Type: Spontaneous
  Country: US (occurrence: US)
  Receive Date: 20210115
  Receipt Date: 20220427
  Transmission Date: 20220721
  Serious: No
  Sender: FDA-Public Use
  Company Number: US-PFIZER INC-2021030050

PATIENT
  Age: 69 Year
  Sex: Male

DRUGS (3)
  1. INLYTA [Suspect]
     Active Substance: AXITINIB
     Dosage: 5 MG, UNK
     Dates: start: 20210101
  2. INLYTA [Suspect]
     Active Substance: AXITINIB
     Dosage: 2 MG, 2X/DAY
     Dates: start: 20210101
  3. INLYTA [Suspect]
     Active Substance: AXITINIB
     Dosage: 1 MG, UNK
     Dates: start: 20210223

REACTIONS (5)
  - Decreased appetite [Unknown]
  - Lethargy [Unknown]
  - Palmar-plantar erythrodysaesthesia syndrome [Recovered/Resolved]
  - Oral pain [Recovering/Resolving]
  - Dysphonia [Unknown]
